FAERS Safety Report 10171050 (Version 1)
Quarter: 2014Q2

REPORT INFORMATION
  Report Type: Spontaneous
  Country: US (occurrence: None)
  Receive Date: 20140513
  Receipt Date: 20140513
  Transmission Date: 20141212
  Serious: Yes (Life-Threatening)
  Sender: FDA-Public Use
  Company Number: None

PATIENT
  Age: 56 Year
  Sex: Male
  Weight: 81.6 kg

DRUGS (2)
  1. PROPOFOL [Suspect]
     Indication: SEDATION
     Route: 042
     Dates: start: 20140426
  2. PROPOFOL [Suspect]
     Indication: CARDIOVERSION
     Route: 042
     Dates: start: 20140426

REACTIONS (2)
  - Hypotension [None]
  - Rash [None]
